FAERS Safety Report 10730247 (Version 2)
Quarter: 2015Q1

REPORT INFORMATION
  Report Type: Spontaneous
  Country: BE (occurrence: BE)
  Receive Date: 20150122
  Receipt Date: 20150127
  Transmission Date: 20150721
  Serious: Yes (Other)
  Sender: FDA-Public Use
  Company Number: BE-ASTRAZENECA-2015SE02596

PATIENT
  Sex: Male
  Weight: 85 kg

DRUGS (9)
  1. RHINOCORT [Suspect]
     Active Substance: BUDESONIDE
     Indication: SINUSITIS
     Route: 045
  2. OMEPRAZOLE EG [Concomitant]
     Indication: ACID BASE BALANCE ABNORMAL
     Route: 048
  3. RHINOCORT [Suspect]
     Active Substance: BUDESONIDE
     Indication: HYPERSENSITIVITY
     Route: 045
  4. RHINOCORT [Suspect]
     Active Substance: BUDESONIDE
     Indication: HYPERSENSITIVITY
     Route: 045
  5. RHINOCORT [Suspect]
     Active Substance: BUDESONIDE
     Indication: HEADACHE
     Route: 045
  6. RHINOCORT [Suspect]
     Active Substance: BUDESONIDE
     Indication: HEADACHE
     Route: 045
  7. COVERAM [Concomitant]
     Active Substance: AMLODIPINE\PERINDOPRIL
     Indication: BLOOD PRESSURE ABNORMAL
     Dosage: 10 MG/ 5 MG
     Route: 048
  8. RHINOCORT [Suspect]
     Active Substance: BUDESONIDE
     Indication: SINUSITIS
     Route: 045
  9. SYMBICORT [Concomitant]
     Active Substance: BUDESONIDE\FORMOTEROL FUMARATE DIHYDRATE
     Indication: HYPERSENSITIVITY
     Route: 045

REACTIONS (1)
  - Headache [Recovered/Resolved]
